FAERS Safety Report 4327598-6 (Version None)
Quarter: 2004Q1

REPORT INFORMATION
  Report Type: 
  Country: None (occurrence: None)
  Receive Date: 20040325
  Receipt Date: 20040309
  Transmission Date: 20041129
  Serious: Yes (Death, Hospitalization)
  Sender: FDA-Public Use
  Company Number: 2004-06777

PATIENT
  Age: 43 Year
  Sex: Male
  Weight: 37 kg

DRUGS (5)
  1. VIREAD [Suspect]
     Indication: HIV INFECTION
     Dosage: 300 MG QD PO
     Route: 048
     Dates: start: 20040120, end: 20040201
  2. COTRIMOXAZOLE [Suspect]
     Indication: CD4 LYMPHOCYTES DECREASED
     Dosage: 960 MG TIW PO
     Route: 048
     Dates: start: 20040109, end: 20040201
  3. LAMIVUDINE [Concomitant]
  4. ATAZANOVIR [Concomitant]
  5. RITONAVIR [Concomitant]

REACTIONS (2)
  - BLOOD CREATININE INCREASED [None]
  - MULTI-ORGAN FAILURE [None]
